FAERS Safety Report 9375248 (Version 1)
Quarter: 2013Q2

REPORT INFORMATION
  Report Type: Spontaneous
  Country: FR (occurrence: FR)
  Receive Date: 20130628
  Receipt Date: 20130628
  Transmission Date: 20140414
  Serious: Yes (Other)
  Sender: FDA-Public Use
  Company Number: FR-TEVA-415348ISR

PATIENT
  Sex: Female

DRUGS (2)
  1. LEVETIRACETAM [Suspect]
     Dosage: 1 GRAM DAILY;
     Route: 065
  2. LAMOTRIGINE [Concomitant]
     Route: 065

REACTIONS (2)
  - Pre-eclampsia [Unknown]
  - Live birth [Unknown]
